FAERS Safety Report 25178188 (Version 2)
Quarter: 2025Q2

REPORT INFORMATION
  Report Type: Spontaneous
  Country: US (occurrence: US)
  Receive Date: 20250409
  Receipt Date: 20250424
  Transmission Date: 20250716
  Serious: No
  Sender: PFIZER
  Company Number: US-PFIZER INC-202500072439

PATIENT
  Age: 66 Year
  Sex: Female

DRUGS (4)
  1. IBRANCE [Suspect]
     Active Substance: PALBOCICLIB
     Route: 048
     Dates: start: 20250210
  2. CALTRATE WITH VITAMIN D [Concomitant]
     Active Substance: CALCIUM CARBONATE\CHOLECALCIFEROL
  3. VITAMIN D3 [Concomitant]
     Active Substance: CHOLECALCIFEROL
  4. EXEMESTANE [Concomitant]
     Active Substance: EXEMESTANE

REACTIONS (2)
  - Full blood count decreased [Not Recovered/Not Resolved]
  - Fatigue [Unknown]
